FAERS Safety Report 6427797-3 (Version None)
Quarter: 2009Q4

REPORT INFORMATION
  Report Type: 
  Country: None (occurrence: None)
  Receive Date: 20091104
  Receipt Date: 20091104
  Transmission Date: 20100525
  Serious: Yes (Life-Threatening, Hospitalization)
  Sender: FDA-Public Use
  Company Number: None

PATIENT
  Age: 44 Year
  Sex: Male

DRUGS (2)
  1. PEGASYS [Suspect]
     Dosage: 180 MCG SQ Q.W.
     Route: 058
     Dates: start: 20090627, end: 20091015
  2. RIBAVIRIN [Suspect]
     Dosage: 600 MG PO BID
     Route: 048
     Dates: start: 20090627, end: 20091015

REACTIONS (3)
  - PARALYSIS [None]
  - PROCEDURAL SITE REACTION [None]
  - STAPHYLOCOCCAL INFECTION [None]
